FAERS Safety Report 5045420-X (Version None)
Quarter: 2006Q3

REPORT INFORMATION
  Report Type: 
  Country: None (occurrence: None)
  Receive Date: 20060707
  Receipt Date: 20060522
  Transmission Date: 20061208
  Serious: Yes (Hospitalization)
  Sender: FDA-Public Use
  Company Number: FR-NOVOPROD-253568

PATIENT
  Age: 36 Year
  Sex: Male
  Weight: 83 kg

DRUGS (2)
  1. LEVEMIR [Suspect]
     Indication: DIABETES MELLITUS
     Dosage: 40 IU, QD
     Route: 058
     Dates: start: 20060201, end: 20060519
  2. NOVORAPID FLEXPEN [Suspect]
     Indication: DIABETES MELLITUS
     Dosage: 16 IU, QD
     Route: 058
     Dates: start: 20060127, end: 20060519

REACTIONS (1)
  - POLYNEUROPATHY [None]
